FAERS Safety Report 9874065 (Version 2)
Quarter: 2014Q1

REPORT INFORMATION
  Report Type: Spontaneous
  Country: US (occurrence: US)
  Receive Date: 20140206
  Receipt Date: 20140206
  Transmission Date: 20141002
  Serious: No
  Sender: FDA-Public Use
  Company Number: US-ACORDA-ACO_33068_2012

PATIENT
  Sex: Female
  Weight: 66.21 kg

DRUGS (4)
  1. AMPYRA [Suspect]
     Indication: GAIT DISTURBANCE
     Dosage: 10 MG, BID
     Route: 048
     Dates: end: 20110404
  2. AMPYRA [Suspect]
     Dosage: 10 UNK, UNK
     Route: 048
     Dates: start: 20121218, end: 20130318
  3. AMPYRA [Suspect]
     Dosage: 10 MG, BID
     Route: 048
     Dates: start: 201301, end: 20130318
  4. ADDERALL [Concomitant]
     Indication: ENERGY INCREASED

REACTIONS (1)
  - Joint swelling [Recovering/Resolving]
